FAERS Safety Report 20523843 (Version 1)
Quarter: 2022Q1

REPORT INFORMATION
  Report Type: Spontaneous
  Country: US (occurrence: US)
  Receive Date: 20220228
  Receipt Date: 20220228
  Transmission Date: 20220423
  Serious: No
  Sender: FDA-Public Use
  Company Number: US-AMGEN-USASP2022031948

PATIENT

DRUGS (2)
  1. ERENUMAB [Suspect]
     Active Substance: ERENUMAB
     Indication: Vestibular migraine
     Dosage: UNK
     Route: 065
  2. BOTOX [Concomitant]
     Active Substance: ONABOTULINUMTOXINA
     Dosage: UNK
     Route: 065

REACTIONS (4)
  - Therapy partial responder [Unknown]
  - Treatment noncompliance [Unknown]
  - Injection site reaction [Unknown]
  - Drug ineffective [Unknown]
